FAERS Safety Report 14274586 (Version 2)
Quarter: 2017Q4

REPORT INFORMATION
  Report Type: Report from Study
  Country: None (occurrence: BG)
  Receive Date: 20171211
  Receipt Date: 20171229
  Transmission Date: 20180321
  Serious: Yes (Death, Life-Threatening, Hospitalization)
  Sender: FDA-Public Use
  Company Number: BG-ABBVIE-17K-022-2189412-00

PATIENT
  Age: 68 Year
  Sex: Female

DRUGS (1)
  1. DUODOPA [Suspect]
     Active Substance: CARBIDOPA\LEVODOPA
     Indication: PARKINSON^S DISEASE
     Dosage: MD-16??CR-5,0??EX-2,0
     Route: 050
     Dates: start: 20171114, end: 20171208

REACTIONS (3)
  - Postoperative thrombosis [Unknown]
  - Death [Fatal]
  - Postoperative ileus [Not Recovered/Not Resolved]

NARRATIVE: CASE EVENT DATE: 2017
